FAERS Safety Report 4868618-X (Version None)
Quarter: 2005Q4

REPORT INFORMATION
  Report Type: 
  Country: None (occurrence: None)
  Receive Date: 20051223
  Receipt Date: 20051215
  Transmission Date: 20060501
  Serious: Yes (Other)
  Sender: FDA-Public Use
  Company Number: 2005169129

PATIENT
  Age: 72 Year
  Sex: Female
  Weight: 58.9676 kg

DRUGS (5)
  1. LIPITOR [Suspect]
     Indication: BLOOD CHOLESTEROL
     Dosage: 10 MG (10 MG, 1 IN 1 D)
     Dates: start: 20040901
  2. THEOPHYLLINE [Concomitant]
  3. ADVAIR DISKUS 100/50 [Concomitant]
  4. FLONASE [Concomitant]
  5. PREDNISONE [Concomitant]

REACTIONS (5)
  - ASTHENIA [None]
  - FATIGUE [None]
  - NAUSEA [None]
  - NEPHROLITHIASIS [None]
  - WRONG TECHNIQUE IN DRUG USAGE PROCESS [None]
